FAERS Safety Report 22266863 (Version 2)
Quarter: 2023Q4

REPORT INFORMATION
  Report Type: Spontaneous
  Country: US (occurrence: US)
  Receive Date: 20230428
  Receipt Date: 20231107
  Transmission Date: 20240109
  Serious: No
  Sender: FDA-Public Use
  Company Number: US-BRISTOL-MYERS SQUIBB COMPANY-2023-061299

PATIENT
  Age: 68 Year
  Sex: Male

DRUGS (1)
  1. REVLIMID [Suspect]
     Active Substance: LENALIDOMIDE
     Indication: Plasma cell myeloma
     Route: 048
     Dates: start: 20221003

REACTIONS (8)
  - Fatigue [Unknown]
  - Somnolence [Unknown]
  - Decreased appetite [Unknown]
  - Neck pain [Unknown]
  - Muscle spasms [Unknown]
  - Arthralgia [Unknown]
  - Chest pain [Unknown]
  - Pain [Unknown]
